FAERS Safety Report 4309957-0 (Version None)
Quarter: 2004Q1

REPORT INFORMATION
  Report Type: 
  Country: None (occurrence: None)
  Receive Date: 20040303
  Receipt Date: 20011002
  Transmission Date: 20041129
  Serious: Yes (Hospitalization, Other)
  Sender: FDA-Public Use
  Company Number: US-BRISTOL-MYERS SQUIBB COMPANY-11030145

PATIENT
  Age: 56 Year
  Sex: Female

DRUGS (6)
  1. STADOL [Suspect]
     Route: 045
  2. IMITREX [Concomitant]
  3. PAXIL [Concomitant]
  4. PREMARIN [Concomitant]
  5. PHENERGAN [Concomitant]
  6. DARVOCET [Concomitant]

REACTIONS (9)
  - ACIDOSIS [None]
  - BLOOD PRESSURE DECREASED [None]
  - DEPENDENCE [None]
  - DRUG DEPENDENCE [None]
  - GASTROENTERITIS [None]
  - LEUKOCYTOSIS [None]
  - RESPIRATORY FAILURE [None]
  - TACHYCARDIA [None]
  - TOXIC SHOCK SYNDROME [None]
